FAERS Safety Report 8117739-7 (Version None)
Quarter: 2012Q1

REPORT INFORMATION
  Report Type: 
  Country: None (occurrence: None)
  Receive Date: 20120203
  Receipt Date: 20120203
  Transmission Date: 20120608
  Serious: Yes (Other)
  Sender: FDA-Public Use
  Company Number: None

PATIENT
  Age: 82 Year
  Sex: Male
  Weight: 78.4723 kg

DRUGS (1)
  1. ZYCLARA [Suspect]
     Indication: SKIN REACTION
     Dosage: ONCE DAILY TWO WEEKS SKIN
     Route: 061
     Dates: start: 20110913, end: 20110927

REACTIONS (2)
  - DRUG INEFFECTIVE [None]
  - ERYTHEMA [None]
